FAERS Safety Report 5991105-2 (Version None)
Quarter: 2008Q4

REPORT INFORMATION
  Report Type: 
  Country: None (occurrence: None)
  Receive Date: 20081211
  Receipt Date: 20081203
  Transmission Date: 20090506
  Serious: Yes (Hospitalization)
  Sender: FDA-Public Use
  Company Number: US-GENENTECH-272936

PATIENT
  Sex: Female

DRUGS (2)
  1. BEVACIZUMAB [Suspect]
     Indication: ENDOMETRIAL CANCER
     Dosage: 15 MG/KG, Q3W
     Route: 042
     Dates: start: 20071227, end: 20080214
  2. COUMADIN [Concomitant]
     Indication: PULMONARY EMBOLISM

REACTIONS (4)
  - DEEP VEIN THROMBOSIS [None]
  - FAILURE TO THRIVE [None]
  - MUSCULAR WEAKNESS [None]
  - PULMONARY EMBOLISM [None]
